FAERS Safety Report 10736522 (Version 1)
Quarter: 2015Q1

REPORT INFORMATION
  Report Type: Spontaneous
  Country: ZA (occurrence: ZA)
  Receive Date: 20150126
  Receipt Date: 20150126
  Transmission Date: 20150721
  Serious: Yes (Hospitalization, Other)
  Sender: FDA-Public Use
  Company Number: ZA-NOVOPROD-436010

PATIENT
  Sex: Female
  Weight: 1.65 kg

DRUGS (3)
  1. LEVEMIR [Suspect]
     Active Substance: INSULIN DETEMIR
     Indication: GESTATIONAL DIABETES
     Dosage: 7 IU, QD
     Route: 064
     Dates: start: 20150113, end: 20150114
  2. NOVORAPID [Suspect]
     Active Substance: INSULIN ASPART
     Indication: GESTATIONAL DIABETES
     Dosage: 5 IU, PRN
     Route: 064
     Dates: start: 20150114, end: 20150114
  3. HY-PO-TONE [Concomitant]
     Indication: GESTATIONAL HYPERTENSION
     Dosage: UNK
     Route: 064

REACTIONS (3)
  - Premature baby [Unknown]
  - Foetal exposure during pregnancy [Recovered/Resolved]
  - Foetal distress syndrome [Unknown]

NARRATIVE: CASE EVENT DATE: 201501
